FAERS Safety Report 8582019-2 (Version None)
Quarter: 2012Q3

REPORT INFORMATION
  Report Type: 
  Country: None (occurrence: None)
  Receive Date: 20120809
  Receipt Date: 20120809
  Transmission Date: 20120928
  Serious: Yes (Disabling, Other)
  Sender: FDA-Public Use
  Company Number: GB-PFIZER INC-2012182278

PATIENT
  Age: 46 Year
  Sex: Female
  Weight: 50 kg

DRUGS (3)
  1. LYRICA [Suspect]
     Indication: NEURALGIA
     Dosage: 200 MG, 3X/DAY
     Dates: start: 20120601
  2. VOLTAREN [Suspect]
     Indication: BACK PAIN
     Dosage: 50 MG, 1X/DAY
     Dates: start: 20120101
  3. LYRICA [Suspect]

REACTIONS (12)
  - OEDEMA PERIPHERAL [None]
  - ABASIA [None]
  - INFLUENZA LIKE ILLNESS [None]
  - TREMOR [None]
  - VISION BLURRED [None]
  - JOINT STIFFNESS [None]
  - DYSKINESIA [None]
  - BACK DISORDER [None]
  - WEIGHT INCREASED [None]
  - MUSCLE SPASMS [None]
  - PAIN IN EXTREMITY [None]
  - DYSGRAPHIA [None]
